FAERS Safety Report 5264665-7 (Version None)
Quarter: 2007Q1

REPORT INFORMATION
  Report Type: 
  Country: None (occurrence: None)
  Receive Date: 20070314
  Receipt Date: 20070309
  Transmission Date: 20070707
  Serious: Yes (Death)
  Sender: FDA-Public Use
  Company Number: KR-JNJFOC-20070302087

PATIENT
  Sex: Male
  Weight: 54.5 kg

DRUGS (5)
  1. SPORANOX [Suspect]
     Indication: FEBRILE NEUTROPENIA
     Route: 042
  2. ACETYLCYSTEINE [Concomitant]
     Route: 065
  3. IMIPENEM [Concomitant]
     Route: 065
  4. MEROPENEM [Concomitant]
     Route: 065
  5. TEICOPLANIN [Concomitant]
     Route: 065

REACTIONS (5)
  - AZOTAEMIA [None]
  - DIARRHOEA [None]
  - GRAFT VERSUS HOST DISEASE [None]
  - LEUKAEMIA [None]
  - VENOOCCLUSIVE DISEASE [None]
